FAERS Safety Report 9243521 (Version 2)
Quarter: 2013Q2

REPORT INFORMATION
  Report Type: Spontaneous
  Country: US (occurrence: None)
  Receive Date: 20121123
  Receipt Date: 20130225
  Transmission Date: 20140414
  Serious: Yes (Hospitalization)
  Sender: FDA-Public Use
  Company Number: 360006

PATIENT
  Sex: Female

DRUGS (2)
  1. VICTOZA [Suspect]
     Indication: TYPE 2 DIABETES MELLITUS
     Route: 058
     Dates: end: 20120906
  2. LEVEMIR (INUSLIN DETEMIR) SOLUTION FOR INJECTION, 0.024MOL/L [Concomitant]

REACTIONS (1)
  - Pancreatitis acute [None]
